FAERS Safety Report 5065906-1 (Version None)
Quarter: 2006Q3

REPORT INFORMATION
  Report Type: 
  Country: None (occurrence: None)
  Receive Date: 20060728
  Receipt Date: 20060728
  Transmission Date: 20061208
  Serious: Yes (Other)
  Sender: FDA-Public Use
  Company Number: None

PATIENT
  Age: 51 Year
  Sex: Female
  Weight: 74.8435 kg

DRUGS (2)
  1. CLEAR EYES FOR DRY EYS   PLUS REDDNESS RELIEF    PRESTIGE BRANDS, INC. [Suspect]
     Indication: DRY EYE
     Dosage: DROPS  AS NEEDED  (2 DROPS IN EACH EYE)
     Dates: start: 20060615, end: 20060615
  2. CLEAR EYES FOR DRY EYS   PLUS REDDNESS RELIEF    PRESTIGE BRANDS, INC. [Suspect]
     Indication: DRY EYE
     Dosage: DROPS  AS NEEDED  (2 DROPS IN EACH EYE)
     Dates: start: 20060616, end: 20060716

REACTIONS (4)
  - EYE IRRITATION [None]
  - FEAR [None]
  - PANIC REACTION [None]
  - VISION BLURRED [None]
